FAERS Safety Report 16406232 (Version 1)
Quarter: 2019Q2

REPORT INFORMATION
  Report Type: Spontaneous
  Country: US (occurrence: US)
  Receive Date: 20190607
  Receipt Date: 20190607
  Transmission Date: 20190711
  Serious: No
  Sender: FDA-Public Use
  Company Number: US-ALLERGAN-1848943US

PATIENT
  Age: 14 Year
  Sex: Female

DRUGS (2)
  1. VIBERZI [Suspect]
     Active Substance: ELUXADOLINE
     Indication: DEPRESSION
  2. VIBERZI [Suspect]
     Active Substance: ELUXADOLINE
     Indication: ANXIETY
     Dosage: ONCE
     Route: 065
     Dates: start: 201808

REACTIONS (2)
  - Off label use [Unknown]
  - Therapeutic response unexpected [Unknown]
